FAERS Safety Report 6578270-3 (Version None)
Quarter: 2010Q1

REPORT INFORMATION
  Report Type: 
  Country: None (occurrence: None)
  Receive Date: 20100211
  Receipt Date: 20100204
  Transmission Date: 20100710
  Serious: Yes (Hospitalization)
  Sender: FDA-Public Use
  Company Number: B0613045A

PATIENT
  Sex: Female
  Weight: 90 kg

DRUGS (2)
  1. LAPATINIB [Suspect]
     Indication: BREAST CANCER METASTATIC
     Dosage: 1250MG PER DAY
     Route: 048
     Dates: start: 20091118, end: 20091205
  2. PACLITAXEL [Suspect]
     Indication: BREAST CANCER METASTATIC
     Dosage: 157.04MG WEEKLY
     Route: 042
     Dates: start: 20091118, end: 20091202

REACTIONS (3)
  - DIARRHOEA [None]
  - ELECTROLYTE DEPLETION [None]
  - WEIGHT DECREASED [None]
